FAERS Safety Report 11427287 (Version 2)
Quarter: 2015Q4

REPORT INFORMATION
  Report Type: Spontaneous
  Country: US (occurrence: US)
  Receive Date: 20150826
  Receipt Date: 20151020
  Transmission Date: 20160304
  Serious: No
  Sender: FDA-Public Use
  Company Number: 0412ADE

PATIENT
  Sex: Female

DRUGS (1)
  1. THIOLA [Suspect]
     Active Substance: TIOPRONIN

REACTIONS (3)
  - Hospitalisation [Unknown]
  - Dehydration [Unknown]
  - Vomiting [Unknown]
